FAERS Safety Report 6735699-8 (Version None)
Quarter: 2010Q2

REPORT INFORMATION
  Report Type: 
  Country: None (occurrence: None)
  Receive Date: 20100520
  Receipt Date: 20100520
  Transmission Date: 20101027
  Serious: No
  Sender: FDA-Public Use
  Company Number: None

PATIENT
  Age: 86 Year
  Sex: Female

DRUGS (1)
  1. GABAPENTIN [Suspect]
     Dosage: TAKE 1 TABLET THREE TIMES A DAY
     Dates: start: 20100318, end: 20100513

REACTIONS (3)
  - DYSPHAGIA [None]
  - PRODUCT SUBSTITUTION ISSUE [None]
  - VOMITING [None]
